FAERS Safety Report 16809669 (Version 4)
Quarter: 2019Q3

REPORT INFORMATION
  Report Type: Spontaneous
  Country: US (occurrence: US)
  Receive Date: 20190916
  Receipt Date: 20190930
  Transmission Date: 20191005
  Serious: Yes (Other)
  Sender: FDA-Public Use
  Company Number: US-AMGEN-USASP2019150463

PATIENT
  Age: 70 Year
  Sex: Male
  Weight: 120 kg

DRUGS (13)
  1. IRON [Concomitant]
     Active Substance: IRON
     Indication: NEPHROGENIC ANAEMIA
     Dosage: UNK
  2. CEFTRIAXONE SODIUM. [Concomitant]
     Active Substance: CEFTRIAXONE SODIUM
     Dosage: 2000
     Dates: start: 20190408, end: 20190902
  3. ROCEPHIN [Concomitant]
     Active Substance: CEFTRIAXONE SODIUM
     Indication: NOCARDIOSIS
     Dosage: UNK
     Dates: start: 20190812, end: 20190913
  4. EPOGEN [Suspect]
     Active Substance: ERYTHROPOIETIN
     Indication: NEPHROGENIC ANAEMIA
     Dosage: 3000 TO 4000 UNITS, 3 TIMES/WK
     Route: 065
     Dates: start: 201501, end: 2018
  5. VENOFER [Concomitant]
     Active Substance: IRON SUCROSE
     Dosage: 50
     Dates: start: 20190408, end: 20190429
  6. HEPARIN [Concomitant]
     Active Substance: HEPARIN SODIUM
     Dosage: 2000
     Dates: start: 20190408, end: 20190918
  7. METOPROLOL. [Concomitant]
     Active Substance: METOPROLOL
     Indication: BLOOD PRESSURE ABNORMAL
     Dosage: 25 MILLIGRAM, QD
     Route: 048
     Dates: start: 2015
  8. EPOGEN [Suspect]
     Active Substance: ERYTHROPOIETIN
     Dosage: 20000 UNIT, 3 TIMES/WK
     Route: 065
     Dates: start: 201808, end: 20190911
  9. ARANESP [Suspect]
     Active Substance: DARBEPOETIN ALFA
     Indication: NEPHROGENIC ANAEMIA
     Dosage: 200 MICROGRAM, QWK
     Route: 065
     Dates: start: 201808, end: 201908
  10. ATARAXONE [HYDROXYZINE] [Concomitant]
     Indication: PRURITUS
     Dosage: 10 MILLIGRAM, BID
     Route: 048
     Dates: start: 2015
  11. SYNTHROID [Concomitant]
     Active Substance: LEVOTHYROXINE SODIUM
     Indication: THYROID DISORDER
     Dosage: 50 MICROGRAM, ONE TIME DOSE
     Route: 048
     Dates: start: 2015
  12. DIGOXIN. [Concomitant]
     Active Substance: DIGOXIN
     Indication: ATRIAL FIBRILLATION
     Dosage: 0.125 MILLIGRAM, THREE TIMES A WEEK (MONDAY-WEDNESDAY-FRIDAY (MWF)
     Dates: start: 2015
  13. CARNITOR [Concomitant]
     Active Substance: LEVOCARNITINE
     Dosage: UNK
     Dates: start: 20190701

REACTIONS (2)
  - Aplasia pure red cell [Unknown]
  - Therapy non-responder [Unknown]

NARRATIVE: CASE EVENT DATE: 2019
